FAERS Safety Report 16224404 (Version 4)
Quarter: 2019Q2

REPORT INFORMATION
  Report Type: Spontaneous
  Country: TR (occurrence: TR)
  Receive Date: 20190422
  Receipt Date: 20190530
  Transmission Date: 20190711
  Serious: Yes (Other)
  Sender: FDA-Public Use
  Company Number: TR-PFIZER INC-2019172961

PATIENT
  Age: 79 Year
  Sex: Female

DRUGS (5)
  1. DELIX (RAMIPRIL) [Suspect]
     Active Substance: RAMIPRIL
     Indication: HYPERTENSION
     Dosage: 1 DF, QD (STOPPED AFTER ONE MONTH OF START)
     Route: 048
     Dates: start: 2013, end: 2013
  2. ATACAND [Concomitant]
     Active Substance: CANDESARTAN CILEXETIL
     Dosage: 8 MG, 1X/DAY  IN THE MORNINGS
     Route: 065
  3. ASPIRIN. [Concomitant]
     Active Substance: ASPIRIN
     Indication: SURGERY
     Dosage: 1 DF, QD (FOR 20 YEARS)
     Route: 048
  4. NORVASC [Suspect]
     Active Substance: AMLODIPINE BESYLATE
     Indication: HYPERTENSION
     Dosage: 5 MG, 1X/DAY IN THE MORNINGS
     Dates: start: 2019
  5. BELOC [METOPROLOL SUCCINATE] [Suspect]
     Active Substance: METOPROLOL SUCCINATE
     Indication: HYPERTENSION
     Dosage: 50 MG, 1X/DAY THE AFTERNOON
     Route: 048
     Dates: start: 1999

REACTIONS (10)
  - Asphyxia [Unknown]
  - Throat irritation [Recovered/Resolved]
  - Productive cough [Unknown]
  - Pruritus [Unknown]
  - Nasal pruritus [Unknown]
  - Dyspnoea [Recovered/Resolved]
  - Hypersensitivity [Unknown]
  - Dry throat [Unknown]
  - Pharyngeal erythema [Recovered/Resolved]
  - Cough [Not Recovered/Not Resolved]

NARRATIVE: CASE EVENT DATE: 2013
